FAERS Safety Report 7318412-5 (Version None)
Quarter: 2011Q1

REPORT INFORMATION
  Report Type: 
  Country: None (occurrence: None)
  Receive Date: 20110223
  Receipt Date: 20110223
  Transmission Date: 20110831
  Serious: No
  Sender: FDA-Public Use
  Company Number: None

PATIENT
  Age: 58 Year
  Sex: Female

DRUGS (1)
  1. TERBINAFINE HCL [Suspect]
     Dates: start: 20081023, end: 20081113

REACTIONS (5)
  - LIVER INJURY [None]
  - HEPATITIS CHOLESTATIC [None]
  - PRURITUS [None]
  - CHROMATURIA [None]
  - DECREASED APPETITE [None]
